FAERS Safety Report 5788567-2 (Version None)
Quarter: 2008Q2

REPORT INFORMATION
  Report Type: 
  Country: None (occurrence: None)
  Receive Date: 20080625
  Receipt Date: 20080625
  Transmission Date: 20081010
  Serious: No
  Sender: FDA-Public Use
  Company Number: None

PATIENT
  Age: 26 Year
  Sex: Male
  Weight: 77.1115 kg

DRUGS (3)
  1. SINGULAIR [Suspect]
     Indication: ASTHMA
     Dosage: 5 MG ONCE A DAY PO
     Route: 048
  2. SINGULAIR [Suspect]
     Indication: HYPERSENSITIVITY
     Dosage: 5 MG ONCE A DAY PO
     Route: 048
  3. SINGULAIR [Suspect]
     Indication: NASAL CONGESTION
     Dosage: 5 MG ONCE A DAY PO
     Route: 048

REACTIONS (2)
  - LIBIDO INCREASED [None]
  - MOOD ALTERED [None]
